FAERS Safety Report 5601964-0 (Version None)
Quarter: 2008Q1

REPORT INFORMATION
  Report Type: 
  Country: None (occurrence: None)
  Receive Date: 20080122
  Receipt Date: 20080107
  Transmission Date: 20080703
  Serious: Yes (Hospitalization)
  Sender: FDA-Public Use
  Company Number: MEDI-0006372

PATIENT
  Sex: Male

DRUGS (1)
  1. SYNAGIS [Suspect]
     Dosage: INTRAMUSCULAR
     Route: 030

REACTIONS (5)
  - HYPOTONIA [None]
  - HYPOVENTILATION [None]
  - LETHARGY [None]
  - LISTLESS [None]
  - OXYGEN SATURATION DECREASED [None]
